FAERS Safety Report 6227864-3 (Version None)
Quarter: 2009Q2

REPORT INFORMATION
  Report Type: 
  Country: None (occurrence: None)
  Receive Date: 20090612
  Receipt Date: 20090602
  Transmission Date: 20091009
  Serious: Yes (Other)
  Sender: FDA-Public Use
  Company Number: A0790429A

PATIENT

DRUGS (1)
  1. ROSIGLITAZONE [Suspect]
     Indication: DRUG USE FOR UNKNOWN INDICATION
     Route: 048
     Dates: start: 20021014, end: 20070105

REACTIONS (1)
  - MYOCARDIAL ISCHAEMIA [None]
